FAERS Safety Report 25392042 (Version 1)
Quarter: 2025Q2

REPORT INFORMATION
  Report Type: Report from Study
  Country: FR (occurrence: FR)
  Receive Date: 20250603
  Receipt Date: 20250603
  Transmission Date: 20250716
  Serious: Yes (Life-Threatening, Hospitalization)
  Sender: MYLAN
  Company Number: FR-SA-2025SA145353

PATIENT
  Age: 68 Year
  Sex: Male

DRUGS (128)
  1. DEXAMETHASONE [Suspect]
     Active Substance: DEXAMETHASONE
     Indication: Plasma cell myeloma refractory
     Route: 065
     Dates: start: 20240610, end: 20240630
  2. DEXAMETHASONE [Suspect]
     Active Substance: DEXAMETHASONE
     Dates: start: 20240610, end: 20240630
  3. DEXAMETHASONE [Suspect]
     Active Substance: DEXAMETHASONE
     Dates: start: 20240610, end: 20240630
  4. DEXAMETHASONE [Suspect]
     Active Substance: DEXAMETHASONE
     Route: 065
     Dates: start: 20240610, end: 20240630
  5. DEXAMETHASONE [Suspect]
     Active Substance: DEXAMETHASONE
     Dosage: 20 MILLIGRAM, BIWEEKLY
     Route: 065
     Dates: start: 20240711, end: 20240806
  6. DEXAMETHASONE [Suspect]
     Active Substance: DEXAMETHASONE
     Dosage: 20 MILLIGRAM, BIWEEKLY
     Dates: start: 20240711, end: 20240806
  7. DEXAMETHASONE [Suspect]
     Active Substance: DEXAMETHASONE
     Dosage: 20 MILLIGRAM, BIWEEKLY
     Dates: start: 20240711, end: 20240806
  8. DEXAMETHASONE [Suspect]
     Active Substance: DEXAMETHASONE
     Dosage: 20 MILLIGRAM, BIWEEKLY
     Route: 065
     Dates: start: 20240711, end: 20240806
  9. DEXAMETHASONE [Suspect]
     Active Substance: DEXAMETHASONE
     Dosage: 20 MILLIGRAM, BIWEEKLY
     Dates: start: 20240808, end: 20240904
  10. DEXAMETHASONE [Suspect]
     Active Substance: DEXAMETHASONE
     Dosage: 20 MILLIGRAM, BIWEEKLY
     Dates: start: 20240808, end: 20240904
  11. DEXAMETHASONE [Suspect]
     Active Substance: DEXAMETHASONE
     Dosage: 20 MILLIGRAM, BIWEEKLY
     Route: 065
     Dates: start: 20240808, end: 20240904
  12. DEXAMETHASONE [Suspect]
     Active Substance: DEXAMETHASONE
     Dosage: 20 MILLIGRAM, BIWEEKLY
     Route: 065
     Dates: start: 20240808, end: 20240904
  13. DEXAMETHASONE [Suspect]
     Active Substance: DEXAMETHASONE
     Dosage: 20 MILLIGRAM, BIWEEKLY
     Dates: start: 20240905, end: 20241002
  14. DEXAMETHASONE [Suspect]
     Active Substance: DEXAMETHASONE
     Dosage: 20 MILLIGRAM, BIWEEKLY
     Dates: start: 20240905, end: 20241002
  15. DEXAMETHASONE [Suspect]
     Active Substance: DEXAMETHASONE
     Dosage: 20 MILLIGRAM, BIWEEKLY
     Route: 065
     Dates: start: 20240905, end: 20241002
  16. DEXAMETHASONE [Suspect]
     Active Substance: DEXAMETHASONE
     Dosage: 20 MILLIGRAM, BIWEEKLY
     Route: 065
     Dates: start: 20240905, end: 20241002
  17. ISATUXIMAB [Suspect]
     Active Substance: ISATUXIMAB
     Indication: Plasma cell myeloma refractory
     Dosage: 10 MILLIGRAM/KILOGRAM, QW
     Route: 065
     Dates: start: 20240610, end: 20240630
  18. ISATUXIMAB [Suspect]
     Active Substance: ISATUXIMAB
     Dosage: 10 MILLIGRAM/KILOGRAM, QW
     Dates: start: 20240610, end: 20240630
  19. ISATUXIMAB [Suspect]
     Active Substance: ISATUXIMAB
     Dosage: 10 MILLIGRAM/KILOGRAM, QW
     Dates: start: 20240610, end: 20240630
  20. ISATUXIMAB [Suspect]
     Active Substance: ISATUXIMAB
     Dosage: 10 MILLIGRAM/KILOGRAM, QW
     Route: 065
     Dates: start: 20240610, end: 20240630
  21. ISATUXIMAB [Suspect]
     Active Substance: ISATUXIMAB
     Route: 065
     Dates: start: 20240711, end: 20240806
  22. ISATUXIMAB [Suspect]
     Active Substance: ISATUXIMAB
     Dates: start: 20240711, end: 20240806
  23. ISATUXIMAB [Suspect]
     Active Substance: ISATUXIMAB
     Dates: start: 20240711, end: 20240806
  24. ISATUXIMAB [Suspect]
     Active Substance: ISATUXIMAB
     Route: 065
     Dates: start: 20240711, end: 20240806
  25. ISATUXIMAB [Suspect]
     Active Substance: ISATUXIMAB
     Dates: start: 20240808, end: 20240904
  26. ISATUXIMAB [Suspect]
     Active Substance: ISATUXIMAB
     Dates: start: 20240808, end: 20240904
  27. ISATUXIMAB [Suspect]
     Active Substance: ISATUXIMAB
     Route: 065
     Dates: start: 20240808, end: 20240904
  28. ISATUXIMAB [Suspect]
     Active Substance: ISATUXIMAB
     Route: 065
     Dates: start: 20240808, end: 20240904
  29. ISATUXIMAB [Suspect]
     Active Substance: ISATUXIMAB
     Dates: start: 20240905, end: 20241002
  30. ISATUXIMAB [Suspect]
     Active Substance: ISATUXIMAB
     Dates: start: 20240905, end: 20241002
  31. ISATUXIMAB [Suspect]
     Active Substance: ISATUXIMAB
     Route: 065
     Dates: start: 20240905, end: 20241002
  32. ISATUXIMAB [Suspect]
     Active Substance: ISATUXIMAB
     Route: 065
     Dates: start: 20240905, end: 20241002
  33. CARFILZOMIB [Suspect]
     Active Substance: CARFILZOMIB
     Indication: Plasma cell myeloma refractory
     Dates: start: 20240610, end: 20240611
  34. CARFILZOMIB [Suspect]
     Active Substance: CARFILZOMIB
     Dates: start: 20240610, end: 20240611
  35. CARFILZOMIB [Suspect]
     Active Substance: CARFILZOMIB
     Route: 065
     Dates: start: 20240610, end: 20240611
  36. CARFILZOMIB [Suspect]
     Active Substance: CARFILZOMIB
     Route: 065
     Dates: start: 20240610, end: 20240611
  37. CARFILZOMIB [Suspect]
     Active Substance: CARFILZOMIB
     Dates: start: 20240617, end: 20240630
  38. CARFILZOMIB [Suspect]
     Active Substance: CARFILZOMIB
     Dates: start: 20240617, end: 20240630
  39. CARFILZOMIB [Suspect]
     Active Substance: CARFILZOMIB
     Route: 065
     Dates: start: 20240617, end: 20240630
  40. CARFILZOMIB [Suspect]
     Active Substance: CARFILZOMIB
     Route: 065
     Dates: start: 20240617, end: 20240630
  41. CARFILZOMIB [Suspect]
     Active Substance: CARFILZOMIB
     Dates: start: 20240711, end: 20240724
  42. CARFILZOMIB [Suspect]
     Active Substance: CARFILZOMIB
     Dates: start: 20240711, end: 20240724
  43. CARFILZOMIB [Suspect]
     Active Substance: CARFILZOMIB
     Route: 065
     Dates: start: 20240711, end: 20240724
  44. CARFILZOMIB [Suspect]
     Active Substance: CARFILZOMIB
     Route: 065
     Dates: start: 20240711, end: 20240724
  45. CARFILZOMIB [Suspect]
     Active Substance: CARFILZOMIB
     Dates: start: 20240808, end: 20240820
  46. CARFILZOMIB [Suspect]
     Active Substance: CARFILZOMIB
     Dates: start: 20240808, end: 20240820
  47. CARFILZOMIB [Suspect]
     Active Substance: CARFILZOMIB
     Route: 065
     Dates: start: 20240808, end: 20240820
  48. CARFILZOMIB [Suspect]
     Active Substance: CARFILZOMIB
     Route: 065
     Dates: start: 20240808, end: 20240820
  49. CARFILZOMIB [Suspect]
     Active Substance: CARFILZOMIB
     Dosage: 56 MILLIGRAM/SQ. METER, BIWEEKLY
     Dates: start: 20240905, end: 20240920
  50. CARFILZOMIB [Suspect]
     Active Substance: CARFILZOMIB
     Dosage: 56 MILLIGRAM/SQ. METER, BIWEEKLY
     Route: 065
     Dates: start: 20240905, end: 20240920
  51. CARFILZOMIB [Suspect]
     Active Substance: CARFILZOMIB
     Dosage: 56 MILLIGRAM/SQ. METER, BIWEEKLY
     Dates: start: 20240905, end: 20240920
  52. CARFILZOMIB [Suspect]
     Active Substance: CARFILZOMIB
     Dosage: 56 MILLIGRAM/SQ. METER, BIWEEKLY
     Route: 065
     Dates: start: 20240905, end: 20240920
  53. LANSOPRAZOLE [Concomitant]
     Active Substance: LANSOPRAZOLE
  54. LANSOPRAZOLE [Concomitant]
     Active Substance: LANSOPRAZOLE
     Route: 065
  55. LANSOPRAZOLE [Concomitant]
     Active Substance: LANSOPRAZOLE
     Route: 065
  56. LANSOPRAZOLE [Concomitant]
     Active Substance: LANSOPRAZOLE
  57. VENLAFAXINE [Concomitant]
     Active Substance: VENLAFAXINE HYDROCHLORIDE
  58. VENLAFAXINE [Concomitant]
     Active Substance: VENLAFAXINE HYDROCHLORIDE
     Route: 065
  59. VENLAFAXINE [Concomitant]
     Active Substance: VENLAFAXINE HYDROCHLORIDE
     Route: 065
  60. VENLAFAXINE [Concomitant]
     Active Substance: VENLAFAXINE HYDROCHLORIDE
  61. CANDESARTAN [Concomitant]
     Active Substance: CANDESARTAN
  62. CANDESARTAN [Concomitant]
     Active Substance: CANDESARTAN
     Route: 065
  63. CANDESARTAN [Concomitant]
     Active Substance: CANDESARTAN
     Route: 065
  64. CANDESARTAN [Concomitant]
     Active Substance: CANDESARTAN
  65. ATORVASTATIN [Concomitant]
     Active Substance: ATORVASTATIN
  66. ATORVASTATIN [Concomitant]
     Active Substance: ATORVASTATIN
     Route: 065
  67. ATORVASTATIN [Concomitant]
     Active Substance: ATORVASTATIN
     Route: 065
  68. ATORVASTATIN [Concomitant]
     Active Substance: ATORVASTATIN
  69. ZOLPIDEM [Concomitant]
     Active Substance: ZOLPIDEM TARTRATE
  70. ZOLPIDEM [Concomitant]
     Active Substance: ZOLPIDEM TARTRATE
     Route: 065
  71. ZOLPIDEM [Concomitant]
     Active Substance: ZOLPIDEM TARTRATE
     Route: 065
  72. ZOLPIDEM [Concomitant]
     Active Substance: ZOLPIDEM TARTRATE
  73. CHOLECALCIFEROL [Concomitant]
     Active Substance: CHOLECALCIFEROL
     Indication: Vitamin supplementation
  74. CHOLECALCIFEROL [Concomitant]
     Active Substance: CHOLECALCIFEROL
     Route: 065
  75. CHOLECALCIFEROL [Concomitant]
     Active Substance: CHOLECALCIFEROL
     Route: 065
  76. CHOLECALCIFEROL [Concomitant]
     Active Substance: CHOLECALCIFEROL
  77. VALACYCLOVIR HYDROCHLORIDE [Concomitant]
     Active Substance: VALACYCLOVIR HYDROCHLORIDE
     Indication: Infection prophylaxis
  78. VALACYCLOVIR HYDROCHLORIDE [Concomitant]
     Active Substance: VALACYCLOVIR HYDROCHLORIDE
     Route: 065
  79. VALACYCLOVIR HYDROCHLORIDE [Concomitant]
     Active Substance: VALACYCLOVIR HYDROCHLORIDE
     Route: 065
  80. VALACYCLOVIR HYDROCHLORIDE [Concomitant]
     Active Substance: VALACYCLOVIR HYDROCHLORIDE
  81. AMOXICILLIN [Concomitant]
     Active Substance: AMOXICILLIN
     Indication: Infection prophylaxis
  82. AMOXICILLIN [Concomitant]
     Active Substance: AMOXICILLIN
     Route: 065
  83. AMOXICILLIN [Concomitant]
     Active Substance: AMOXICILLIN
     Route: 065
  84. AMOXICILLIN [Concomitant]
     Active Substance: AMOXICILLIN
  85. ALLOPURINOL [Concomitant]
     Active Substance: ALLOPURINOL
     Indication: Hyperuricaemia
  86. ALLOPURINOL [Concomitant]
     Active Substance: ALLOPURINOL
     Route: 065
  87. ALLOPURINOL [Concomitant]
     Active Substance: ALLOPURINOL
     Route: 065
  88. ALLOPURINOL [Concomitant]
     Active Substance: ALLOPURINOL
  89. ERYTHROPOIETIN [Concomitant]
     Active Substance: ERYTHROPOIETIN
     Indication: Anaemia prophylaxis
  90. ERYTHROPOIETIN [Concomitant]
     Active Substance: ERYTHROPOIETIN
     Route: 065
  91. ERYTHROPOIETIN [Concomitant]
     Active Substance: ERYTHROPOIETIN
     Route: 065
  92. ERYTHROPOIETIN [Concomitant]
     Active Substance: ERYTHROPOIETIN
  93. PENTAMIDINE [Concomitant]
     Active Substance: PENTAMIDINE
     Indication: Infection prophylaxis
  94. PENTAMIDINE [Concomitant]
     Active Substance: PENTAMIDINE
     Route: 065
  95. PENTAMIDINE [Concomitant]
     Active Substance: PENTAMIDINE
     Route: 065
  96. PENTAMIDINE [Concomitant]
     Active Substance: PENTAMIDINE
  97. ALBUTEROL [Concomitant]
     Active Substance: ALBUTEROL
     Indication: Infection prophylaxis
  98. ALBUTEROL [Concomitant]
     Active Substance: ALBUTEROL
     Route: 065
  99. ALBUTEROL [Concomitant]
     Active Substance: ALBUTEROL
     Route: 065
  100. ALBUTEROL [Concomitant]
     Active Substance: ALBUTEROL
  101. PENTACARINAT [Concomitant]
     Active Substance: PENTAMIDINE ISETHIONATE
     Indication: Infection prophylaxis
  102. PENTACARINAT [Concomitant]
     Active Substance: PENTAMIDINE ISETHIONATE
     Route: 065
  103. PENTACARINAT [Concomitant]
     Active Substance: PENTAMIDINE ISETHIONATE
     Route: 065
  104. PENTACARINAT [Concomitant]
     Active Substance: PENTAMIDINE ISETHIONATE
  105. FERROUS SULFATE [Concomitant]
     Active Substance: FERROUS SULFATE
  106. FERROUS SULFATE [Concomitant]
     Active Substance: FERROUS SULFATE
     Route: 065
  107. FERROUS SULFATE [Concomitant]
     Active Substance: FERROUS SULFATE
     Route: 065
  108. FERROUS SULFATE [Concomitant]
     Active Substance: FERROUS SULFATE
  109. ZYRTEC [Concomitant]
     Active Substance: CETIRIZINE HYDROCHLORIDE
     Dates: start: 20240905, end: 20241005
  110. ZYRTEC [Concomitant]
     Active Substance: CETIRIZINE HYDROCHLORIDE
     Route: 065
     Dates: start: 20240905, end: 20241005
  111. ZYRTEC [Concomitant]
     Active Substance: CETIRIZINE HYDROCHLORIDE
     Route: 065
     Dates: start: 20240905, end: 20241005
  112. ZYRTEC [Concomitant]
     Active Substance: CETIRIZINE HYDROCHLORIDE
     Dates: start: 20240905, end: 20241005
  113. ELIQUIS [Concomitant]
     Active Substance: APIXABAN
     Dates: start: 20240905, end: 20241017
  114. ELIQUIS [Concomitant]
     Active Substance: APIXABAN
     Route: 065
     Dates: start: 20240905, end: 20241017
  115. ELIQUIS [Concomitant]
     Active Substance: APIXABAN
     Route: 065
     Dates: start: 20240905, end: 20241017
  116. ELIQUIS [Concomitant]
     Active Substance: APIXABAN
     Dates: start: 20240905, end: 20241017
  117. OXAZEPAM [Concomitant]
     Active Substance: OXAZEPAM
  118. OXAZEPAM [Concomitant]
     Active Substance: OXAZEPAM
     Route: 065
  119. OXAZEPAM [Concomitant]
     Active Substance: OXAZEPAM
     Route: 065
  120. OXAZEPAM [Concomitant]
     Active Substance: OXAZEPAM
  121. ACUPAN [Concomitant]
     Active Substance: NEFOPAM HYDROCHLORIDE
     Dates: start: 20241019, end: 20241022
  122. ACUPAN [Concomitant]
     Active Substance: NEFOPAM HYDROCHLORIDE
     Route: 065
     Dates: start: 20241019, end: 20241022
  123. ACUPAN [Concomitant]
     Active Substance: NEFOPAM HYDROCHLORIDE
     Route: 065
     Dates: start: 20241019, end: 20241022
  124. ACUPAN [Concomitant]
     Active Substance: NEFOPAM HYDROCHLORIDE
     Dates: start: 20241019, end: 20241022
  125. FILGRASTIM [Concomitant]
     Active Substance: FILGRASTIM
     Dates: start: 20241021, end: 20241028
  126. FILGRASTIM [Concomitant]
     Active Substance: FILGRASTIM
     Route: 065
     Dates: start: 20241021, end: 20241028
  127. FILGRASTIM [Concomitant]
     Active Substance: FILGRASTIM
     Route: 065
     Dates: start: 20241021, end: 20241028
  128. FILGRASTIM [Concomitant]
     Active Substance: FILGRASTIM
     Dates: start: 20241021, end: 20241028

REACTIONS (5)
  - Congenital aplasia [Recovered/Resolved]
  - Escherichia bacteraemia [Unknown]
  - Mucosal inflammation [Not Recovered/Not Resolved]
  - Decreased appetite [Not Recovered/Not Resolved]
  - Diarrhoea [Not Recovered/Not Resolved]

NARRATIVE: CASE EVENT DATE: 20241019
